FAERS Safety Report 5943939-8 (Version None)
Quarter: 2008Q4

REPORT INFORMATION
  Report Type: 
  Country: None (occurrence: None)
  Receive Date: 20081106
  Receipt Date: 20081028
  Transmission Date: 20090506
  Serious: Yes (Other)
  Sender: FDA-Public Use
  Company Number: US-ELI_LILLY_AND_COMPANY-US200810006907

PATIENT
  Sex: Female

DRUGS (14)
  1. BYETTA [Suspect]
     Indication: TYPE 2 DIABETES MELLITUS
     Dosage: 5 UG, 2/D
     Route: 058
     Dates: start: 20080101, end: 20080101
  2. BYETTA [Suspect]
     Dosage: 10 UG, 2/D
     Route: 058
     Dates: start: 20080101
  3. METFORMIN HCL [Concomitant]
     Indication: TYPE 2 DIABETES MELLITUS
     Dosage: 1000 MG, 2/D
     Route: 048
  4. ANTI-DIABETICS [Concomitant]
     Indication: TYPE 2 DIABETES MELLITUS
     Dosage: 100 MG, DAILY (1/D)
     Route: 048
  5. PROTONIX [Concomitant]
     Dosage: 40 MG, DAILY (1/D)
     Route: 048
  6. ZETIA [Concomitant]
     Dosage: 10 MG, DAILY (1/D)
     Route: 048
  7. FERROUS SULFATE [Concomitant]
     Dosage: UNK, DAILY (1/D)
     Route: 048
  8. VAGIFEM [Concomitant]
     Indication: HORMONE REPLACEMENT THERAPY
     Dosage: UNK, DAILY (1/D)
     Route: 048
  9. HYDROCHLOROTHIAZIDE [Concomitant]
     Indication: OEDEMA
     Dosage: UNK, UNKNOWN
     Dates: end: 20080101
  10. HYDROCHLOROTHIAZIDE [Concomitant]
     Dosage: UNK, AS NEEDED
     Dates: start: 20080101
  11. LEVOTHYROXINE SODIUM [Concomitant]
     Dosage: UNK, DAILY (1/D)
     Route: 048
  12. INFLUENZA VACCINE [Concomitant]
     Dates: start: 20081024, end: 20081024
  13. VITAMIN B-12 [Concomitant]
     Indication: VITAMIN B12 DEFICIENCY
     Dosage: UNK, AS NEEDED
  14. TYLENOL (CAPLET) [Concomitant]
     Indication: PAIN IN EXTREMITY
     Dosage: UNK, AS NEEDED

REACTIONS (9)
  - BLOOD GLUCOSE INCREASED [None]
  - CATARACT [None]
  - DRY EYE [None]
  - DRY SKIN [None]
  - FEELING ABNORMAL [None]
  - INJECTION SITE PAIN [None]
  - PAIN IN EXTREMITY [None]
  - ROAD TRAFFIC ACCIDENT [None]
  - VISUAL ACUITY REDUCED [None]
